FAERS Safety Report 11614197 (Version 6)
Quarter: 2016Q3

REPORT INFORMATION
  Report Type: Report from Study
  Country: BR (occurrence: BR)
  Receive Date: 20151008
  Receipt Date: 20160810
  Transmission Date: 20161109
  Serious: Yes (Hospitalization, Other)
  Sender: FDA-Public Use
  Company Number: PHHY2015BR120105

PATIENT
  Sex: Male

DRUGS (6)
  1. EXJADE [Suspect]
     Active Substance: DEFERASIROX
     Indication: SICKLE CELL ANAEMIA
     Dosage: 2 DF, QD
     Route: 048
     Dates: start: 201501
  2. B COMPLEX                          /00322001/ [Concomitant]
     Indication: SICKLE CELL ANAEMIA
     Dosage: 1 DF, QD
     Route: 048
  3. HYDREA [Concomitant]
     Active Substance: HYDROXYUREA
     Indication: SICKLE CELL ANAEMIA
     Dosage: 3 DF, QD
     Route: 048
  4. EXJADE [Suspect]
     Active Substance: DEFERASIROX
     Dosage: 3 DF, QD (IN THE MORNING)
     Route: 048
  5. FOLIC ACID. [Concomitant]
     Active Substance: FOLIC ACID
     Indication: SICKLE CELL ANAEMIA
     Dosage: 1 DF, QD
     Route: 048
  6. EXJADE [Suspect]
     Active Substance: DEFERASIROX
     Dosage: 2 DF, QD
     Route: 048

REACTIONS (16)
  - Kidney infection [Recovering/Resolving]
  - Yellow skin [Recovering/Resolving]
  - Blood bilirubin increased [Recovering/Resolving]
  - Hepatic siderosis [Unknown]
  - Secretion discharge [Unknown]
  - Vomiting [Recovering/Resolving]
  - Jaundice [Not Recovered/Not Resolved]
  - Sinusitis [Unknown]
  - Cholelithiasis [Unknown]
  - Pyrexia [Recovering/Resolving]
  - Platelet count decreased [Recovering/Resolving]
  - Gastrointestinal infection [Recovering/Resolving]
  - Diarrhoea [Recovering/Resolving]
  - Haematocrit decreased [Recovering/Resolving]
  - Lip discolouration [Unknown]
  - Fatigue [Unknown]
